FAERS Safety Report 4510973-4 (Version None)
Quarter: 2004Q4

REPORT INFORMATION
  Report Type: 
  Country: None (occurrence: None)
  Receive Date: 20040928
  Receipt Date: 20040602
  Transmission Date: 20050328
  Serious: No
  Sender: FDA-Public Use
  Company Number: 04P-163-0262775-00

PATIENT
  Age: 67 Year
  Sex: Male
  Weight: 83.9154 kg

DRUGS (10)
  1. HUMIRA [Suspect]
     Indication: RHEUMATOID ARTHRITIS
     Dosage: 40 MG, 1 IN 2 WK, SUBCUTANEOUS
     Route: 058
     Dates: start: 20040521
  2. BUPROPION HYDROCHLORIDE [Concomitant]
  3. DILTIAZEM HYDROCHLORIDE [Concomitant]
  4. PREDNISONE [Concomitant]
  5. SINGULAIR [Concomitant]
  6. ACETYLSALICYLIC ACID [Concomitant]
  7. LEFLUNOMIDE [Concomitant]
  8. DOXAZOSIN [Concomitant]
  9. COLCHICINE [Concomitant]
  10. WARFARIN [Concomitant]

REACTIONS (1)
  - HEADACHE [None]
